FAERS Safety Report 12927408 (Version 1)
Quarter: 2016Q4

REPORT INFORMATION
  Report Type: Spontaneous
  Country: US (occurrence: US)
  Receive Date: 20161109
  Receipt Date: 20161109
  Transmission Date: 20170207
  Serious: No
  Sender: FDA-Public Use
  Company Number: US-ALLERGAN-1635725US

PATIENT
  Age: 67 Year
  Sex: Male

DRUGS (4)
  1. ALPHAGAN P [Suspect]
     Active Substance: BRIMONIDINE TARTRATE
     Indication: OPEN ANGLE GLAUCOMA
     Dosage: 1 GTT, BID
     Route: 047
  2. TYRAMINE [Concomitant]
     Active Substance: TYRAMINE
  3. LATANOPROST. [Concomitant]
     Active Substance: LATANOPROST
     Indication: GLAUCOMA
     Dosage: UNK UNK, QD
     Route: 047
  4. AZOPT [Concomitant]
     Active Substance: BRINZOLAMIDE
     Indication: GLAUCOMA
     Dosage: 2 GTT, BID
     Route: 047

REACTIONS (11)
  - Accidental exposure to product [Unknown]
  - Movement disorder [Recovered/Resolved]
  - Eyelid degenerative disorder [Not Recovered/Not Resolved]
  - Hypoaesthesia oral [Recovered/Resolved]
  - Product dropper issue [Unknown]
  - Aphasia [Recovered/Resolved]
  - Coordination abnormal [Recovered/Resolved]
  - Musculoskeletal stiffness [Not Recovered/Not Resolved]
  - Incorrect dose administered [Unknown]
  - Headache [Not Recovered/Not Resolved]
  - Dizziness [Not Recovered/Not Resolved]

NARRATIVE: CASE EVENT DATE: 201505
